FAERS Safety Report 10976206 (Version 2)
Quarter: 2015Q2

REPORT INFORMATION
  Report Type: Spontaneous
  Country: US (occurrence: US)
  Receive Date: 20150401
  Receipt Date: 20150525
  Transmission Date: 20150821
  Serious: Yes (Other)
  Sender: FDA-Public Use
  Company Number: US-JNJFOC-20140106918

PATIENT
  Sex: Male

DRUGS (6)
  1. ZOLOFT [Concomitant]
     Active Substance: SERTRALINE HYDROCHLORIDE
     Indication: PRODUCT USED FOR UNKNOWN INDICATION
     Route: 065
  2. RISPERDAL [Suspect]
     Active Substance: RISPERIDONE
     Indication: IMPULSIVE BEHAVIOUR
     Route: 048
     Dates: start: 200810, end: 201206
  3. INTUNIV [Concomitant]
     Active Substance: GUANFACINE HYDROCHLORIDE
     Indication: PRODUCT USED FOR UNKNOWN INDICATION
     Route: 065
  4. RISPERDAL [Suspect]
     Active Substance: RISPERIDONE
     Indication: IMPULSIVE BEHAVIOUR
     Route: 048
     Dates: start: 200810, end: 201206
  5. RISPERDAL [Suspect]
     Active Substance: RISPERIDONE
     Indication: ANXIETY
     Route: 048
     Dates: start: 200810, end: 201206
  6. RISPERDAL [Suspect]
     Active Substance: RISPERIDONE
     Indication: NERVOUSNESS
     Route: 048
     Dates: start: 200810, end: 201206

REACTIONS (7)
  - Gynaecomastia [Not Recovered/Not Resolved]
  - Lethargy [Unknown]
  - Abnormal weight gain [Not Recovered/Not Resolved]
  - Emotional distress [Unknown]
  - Glucose tolerance impaired [Unknown]
  - Product use issue [Unknown]
  - Irritability [Unknown]
